FAERS Safety Report 8283831-X (Version None)
Quarter: 2012Q2

REPORT INFORMATION
  Report Type: 
  Country: None (occurrence: None)
  Receive Date: 20120413
  Receipt Date: 20110928
  Transmission Date: 20120825
  Serious: No
  Sender: FDA-Public Use
  Company Number: US-ASTRAZENECA-2011SE58597

PATIENT
  Age: 51 Year
  Sex: Male

DRUGS (31)
  1. NEURONTIN [Concomitant]
     Route: 048
  2. IMDUR [Concomitant]
     Route: 048
  3. UROXATRAL [Concomitant]
     Route: 048
  4. LASIX [Concomitant]
     Route: 048
  5. JANUVIA [Concomitant]
     Route: 048
  6. ASPIRIN [Concomitant]
     Route: 048
  7. VITAMIN D [Concomitant]
  8. VASOTEC [Concomitant]
     Route: 048
  9. LANTUS [Concomitant]
     Dosage: 100 UNIT/ML
     Route: 065
  10. ANTIVERT [Concomitant]
     Route: 048
  11. REGLAN [Concomitant]
     Route: 048
  12. NITROSTAT [Concomitant]
     Route: 048
  13. POTASSIUM CHLORIDE [Concomitant]
     Route: 048
  14. ELAVIL [Concomitant]
     Route: 048
  15. NORVASC [Concomitant]
     Route: 048
  16. SPIRIVA [Concomitant]
     Route: 055
  17. TAGAMET [Concomitant]
     Route: 048
  18. ACCU-CHEK AVIVA [Concomitant]
  19. NEXIUM [Suspect]
     Route: 048
  20. COREG CR [Concomitant]
     Route: 048
  21. LIRAGLUTIDE [Concomitant]
     Dosage: 0.6 MG/01. ML (18 MG/3 ML)
  22. ZOLOFT [Concomitant]
     Route: 048
  23. GLUCOTROL XL [Concomitant]
     Route: 048
  24. FLEXERIL [Concomitant]
     Route: 048
  25. VISTARIL [Concomitant]
     Route: 048
  26. COLESTID [Concomitant]
     Route: 048
  27. CRESTOR [Suspect]
     Route: 048
  28. SYMBICORT [Concomitant]
     Dosage: 80/4.5 MCG UNK FREQUENCY
     Route: 055
  29. COLD BOND QUICK SPRAY [Concomitant]
     Dosage: 0.13-1 %
     Route: 065
  30. ACCUPRIL [Concomitant]
     Route: 048
  31. LIORESAL [Concomitant]
     Route: 048

REACTIONS (11)
  - GASTROOESOPHAGEAL REFLUX DISEASE [None]
  - ANXIETY DISORDER [None]
  - BACK PAIN [None]
  - DIABETES MELLITUS INADEQUATE CONTROL [None]
  - CHEST PAIN [None]
  - HYPERCHOLESTEROLAEMIA [None]
  - MUSCLE SPASMS [None]
  - VERTIGO [None]
  - DERMATITIS [None]
  - ESSENTIAL HYPERTENSION [None]
  - INSOMNIA [None]
